FAERS Safety Report 7736814-X (Version None)
Quarter: 2011Q3

REPORT INFORMATION
  Report Type: 
  Country: None (occurrence: None)
  Receive Date: 20110908
  Receipt Date: 20110908
  Transmission Date: 20111222
  Serious: Yes (Hospitalization)
  Sender: FDA-Public Use
  Company Number: None

PATIENT
  Age: 74 Year
  Sex: Female
  Weight: 110 kg

DRUGS (1)
  1. PRADAXA [Suspect]
     Dosage: 150MG
     Route: 048

REACTIONS (4)
  - HAEMOGLOBIN DECREASED [None]
  - GASTROINTESTINAL HAEMORRHAGE [None]
  - DIVERTICULUM INTESTINAL HAEMORRHAGIC [None]
  - CREATININE RENAL CLEARANCE DECREASED [None]
